FAERS Safety Report 8812874 (Version 1)
Quarter: 2012Q4

REPORT INFORMATION
  Report Type: 
  Country: US (occurrence: US)
  Receive Date: 20120927
  Receipt Date: 20120927
  Transmission Date: 20130627
  Serious: No
  Sender: FDA-Public Use
  Company Number: US-AMGEN-USASP2012035076

PATIENT
  Age: 72 Year
  Sex: Female

DRUGS (8)
  1. XGEVA [Suspect]
     Indication: LUNG NEOPLASM MALIGNANT
     Dosage: 120 mg, qmo
     Route: 058
     Dates: start: 20120213
  2. CALCIUM [Concomitant]
  3. VITAMIN D /00107901/ [Concomitant]
  4. DOCETAXEL [Concomitant]
  5. ANTIHYPERTENSIVES [Concomitant]
  6. METOPROLOL [Concomitant]
     Dosage: UNK
  7. HYZAAR [Concomitant]
     Dosage: UNK
  8. LORAZEPAM [Concomitant]
     Dosage: UNK

REACTIONS (1)
  - Tooth loss [Unknown]
